FAERS Safety Report 14613366 (Version 1)
Quarter: 2018Q1

REPORT INFORMATION
  Report Type: Spontaneous
  Country: US (occurrence: US)
  Receive Date: 20180308
  Receipt Date: 20180308
  Transmission Date: 20180509
  Serious: No
  Sender: FDA-Public Use
  Company Number: None

PATIENT
  Age: 62 Year
  Sex: Female

DRUGS (21)
  1. FLONASE [Concomitant]
     Active Substance: FLUTICASONE PROPIONATE
  2. TORSEMIDE. [Concomitant]
     Active Substance: TORSEMIDE
  3. GENTAMICIN OPHT DROP [Concomitant]
  4. RANITIDINE. [Concomitant]
     Active Substance: RANITIDINE
  5. LETAIRIS [Suspect]
     Active Substance: AMBRISENTAN
     Indication: HEART DISEASE CONGENITAL
     Route: 048
     Dates: start: 20171201, end: 20180108
  6. CELLCEPT [Concomitant]
     Active Substance: MYCOPHENOLATE MOFETIL\MYCOPHENOLATE MOFETIL HYDROCHLORIDE
  7. BETAMETHASONE DIPROPIONATE TOP OINT [Concomitant]
  8. PILOCARPNE [Concomitant]
  9. DULERA HFA [Concomitant]
  10. MOUTHWASH: DEXAMETHASONE-DIPHENHYDRAMINE-NYSTATIN ORAL SUSP. [Concomitant]
  11. BENZONATATE. [Concomitant]
     Active Substance: BENZONATATE
  12. ALBUTEROL NEB SOLN, 0.083% [Concomitant]
     Active Substance: ALBUTEROL
  13. AMLODIPINE [Concomitant]
     Active Substance: AMLODIPINE BESYLATE
  14. PREDNISONE. [Concomitant]
     Active Substance: PREDNISONE
  15. LETAIRIS [Suspect]
     Active Substance: AMBRISENTAN
     Indication: PULMONARY ARTERIAL HYPERTENSION
     Route: 048
     Dates: start: 20171201, end: 20180108
  16. LETAIRIS [Suspect]
     Active Substance: AMBRISENTAN
     Indication: CONNECTIVE TISSUE DISORDER
     Route: 048
     Dates: start: 20171201, end: 20180108
  17. REVATIO [Concomitant]
     Active Substance: SILDENAFIL CITRATE
  18. VENTOLIN HFA [Concomitant]
     Active Substance: ALBUTEROL SULFATE
  19. VITAMIN B12 [Concomitant]
     Active Substance: CYANOCOBALAMIN
  20. ESTRACE [Concomitant]
     Active Substance: ESTRADIOL
  21. VITAMIN D3 [Concomitant]
     Active Substance: CHOLECALCIFEROL

REACTIONS (3)
  - Therapy change [None]
  - Dyspnoea [None]
  - Therapy cessation [None]

NARRATIVE: CASE EVENT DATE: 20180108
